FAERS Safety Report 23618610 (Version 3)
Quarter: 2024Q2

REPORT INFORMATION
  Report Type: Report from Study
  Country: US (occurrence: US)
  Receive Date: 20240311
  Receipt Date: 20240516
  Transmission Date: 20240716
  Serious: No
  Sender: FDA-Public Use
  Company Number: US-ALXN-202403USA000526US

PATIENT
  Age: 50 Year
  Sex: Female

DRUGS (1)
  1. STRENSIQ [Suspect]
     Active Substance: ASFOTASE ALFA
     Indication: Product used for unknown indication
     Dosage: UNK
     Route: 065

REACTIONS (25)
  - Bone disorder [Unknown]
  - Vitamin B6 decreased [Unknown]
  - Skin fibrosis [Unknown]
  - Capillary disorder [Unknown]
  - Injury [Unknown]
  - Musculoskeletal stiffness [Unknown]
  - Spinal deformity [Unknown]
  - Asthenia [Unknown]
  - Dizziness [Unknown]
  - Aortic valve calcification [Unknown]
  - Blood pressure increased [Unknown]
  - Heart rate increased [Unknown]
  - Confusional state [Unknown]
  - Nail disorder [Unknown]
  - Oral mucosal blistering [Unknown]
  - Liver disorder [Unknown]
  - Parietal cell antibody positive [Unknown]
  - Acne [Unknown]
  - Red blood cell count decreased [Unknown]
  - Mean cell volume [Unknown]
  - Mean cell haemoglobin [Unknown]
  - Mean platelet volume decreased [Unknown]
  - Breast disorder [Unknown]
  - Injection site erythema [Unknown]
  - Injection site bruising [Unknown]

NARRATIVE: CASE EVENT DATE: 20240122
